FAERS Safety Report 24420070 (Version 1)
Quarter: 2024Q4

REPORT INFORMATION
  Report Type: Report from Study
  Country: US (occurrence: US)
  Receive Date: 20241010
  Receipt Date: 20241010
  Transmission Date: 20250115
  Serious: No
  Sender: SANDOZ
  Company Number: US-002147023-NVSC2023US038917

PATIENT
  Age: 61 Year
  Sex: Female

DRUGS (1)
  1. GLATOPA [Suspect]
     Active Substance: GLATIRAMER ACETATE
     Indication: Product used for unknown indication
     Dosage: UNK
     Route: 065

REACTIONS (5)
  - Injection site pain [Unknown]
  - Syringe issue [Unknown]
  - Injection site pain [Unknown]
  - Injection site swelling [Unknown]
  - Injection site pruritus [Unknown]
